FAERS Safety Report 9370703 (Version 2)
Quarter: 2013Q3

REPORT INFORMATION
  Report Type: Report from Study
  Country: NL (occurrence: NL)
  Receive Date: 20130626
  Receipt Date: 20130828
  Transmission Date: 20140515
  Serious: Yes (Other)
  Sender: FDA-Public Use
  Company Number: NL-ABBOTT-13P-114-1107236-00

PATIENT
  Sex: Male
  Weight: 77 kg

DRUGS (3)
  1. LEUPRORELINE (LUCRIN) [Suspect]
     Indication: PROSTATE CANCER
     Route: 058
     Dates: start: 20121224
  2. MEDICATION NOS [Concomitant]
     Indication: HYPERTENSION
     Route: 048
  3. MEDICATION NOS [Concomitant]
     Indication: CARDIAC DISORDER

REACTIONS (2)
  - Metastases to lymph nodes [Not Recovered/Not Resolved]
  - Hot flush [Not Recovered/Not Resolved]
